FAERS Safety Report 4518047-3 (Version None)
Quarter: 2004Q4

REPORT INFORMATION
  Report Type: 
  Country: None (occurrence: None)
  Receive Date: 20041130
  Receipt Date: 20041115
  Transmission Date: 20050328
  Serious: Yes (Death, Hospitalization)
  Sender: FDA-Public Use
  Company Number: 203809

PATIENT
  Age: 74 Year
  Sex: Male

DRUGS (6)
  1. AVONEX [Suspect]
     Indication: MULTIPLE SCLEROSIS
     Dosage: 30 UG;QW; IM
     Route: 030
     Dates: start: 20030813, end: 20040823
  2. AVONEX [Suspect]
     Indication: MULTIPLE SCLEROSIS
     Dosage: 30 UG;QW; IM
     Route: 030
     Dates: start: 20000825
  3. MEMTOPROLOL [Concomitant]
  4. DETROL LA [Concomitant]
  5. ZOCOR [Concomitant]
  6. ASPIRIN [Concomitant]

REACTIONS (10)
  - ASTHENIA [None]
  - CARDIO-RESPIRATORY ARREST [None]
  - CIRCULATORY COLLAPSE [None]
  - DEHYDRATION [None]
  - ELECTROMECHANICAL DISSOCIATION [None]
  - FALL [None]
  - INFLUENZA LIKE ILLNESS [None]
  - SEPSIS [None]
  - SUDDEN CARDIAC DEATH [None]
  - URINARY TRACT INFECTION [None]
